FAERS Safety Report 6779686-2 (Version None)
Quarter: 2010Q2

REPORT INFORMATION
  Report Type: 
  Country: None (occurrence: None)
  Receive Date: 20100618
  Receipt Date: 20100607
  Transmission Date: 20101027
  Serious: Yes (Other)
  Sender: FDA-Public Use
  Company Number: US-JNJFOC-20100301313

PATIENT
  Sex: Female
  Weight: 83.01 kg

DRUGS (9)
  1. REMICADE [Suspect]
     Indication: RHEUMATOID ARTHRITIS
     Dosage: FOR ABOUT 2 YEARS
     Route: 042
  2. METHOTREXATE [Concomitant]
  3. MOBIC [Concomitant]
  4. ATACAND HCT [Concomitant]
  5. PREMARIN [Concomitant]
  6. ESTRATEST H.S. [Concomitant]
  7. CENTRUM SILVER [Concomitant]
  8. FOLTX [Concomitant]
  9. NYSTATIN [Concomitant]

REACTIONS (2)
  - GRANULOMATOUS LIVER DISEASE [None]
  - SARCOIDOSIS [None]
